FAERS Safety Report 20137706 (Version 2)
Quarter: 2021Q4

REPORT INFORMATION
  Report Type: Spontaneous
  Country: US (occurrence: US)
  Receive Date: 20211202
  Receipt Date: 20211206
  Transmission Date: 20220304
  Serious: No
  Sender: FDA-Public Use
  Company Number: US-NOVARTISTESTPH-NVSC2021US275341

PATIENT
  Sex: Female

DRUGS (1)
  1. VOLTAREN [Suspect]
     Active Substance: DICLOFENAC SODIUM
     Indication: Arthritis
     Dosage: UNK
     Route: 061
     Dates: start: 20211123, end: 20211123

REACTIONS (3)
  - Pain in extremity [Unknown]
  - Product administered at inappropriate site [Unknown]
  - Tremor [Unknown]

NARRATIVE: CASE EVENT DATE: 20211123
